FAERS Safety Report 7113545-0 (Version None)
Quarter: 2010Q4

REPORT INFORMATION
  Report Type: 
  Country: None (occurrence: None)
  Receive Date: 20101119
  Receipt Date: 20101109
  Transmission Date: 20110411
  Serious: No
  Sender: FDA-Public Use
  Company Number: US-PFIZER INC-2010146670

PATIENT
  Sex: Female
  Weight: 58.97 kg

DRUGS (6)
  1. PRISTIQ [Suspect]
     Indication: MOOD SWINGS
     Route: 048
     Dates: start: 20101101, end: 20101107
  2. EFFEXOR XR [Suspect]
     Indication: MOOD SWINGS
     Dosage: 150 MG, 1X/DAY
     Route: 048
  3. ADVIL PM [Suspect]
     Indication: SLEEP DISORDER
     Dates: start: 20090101
  4. AMBIEN [Suspect]
     Indication: SLEEP DISORDER
     Dates: start: 20090101, end: 20090101
  5. TYLENOL PM [Suspect]
     Indication: SLEEP DISORDER
     Dates: start: 20090101
  6. ESTROSTEP [Concomitant]
     Indication: CONTRACEPTION

REACTIONS (10)
  - ABNORMAL DREAMS [None]
  - DEPRESSION [None]
  - DIARRHOEA [None]
  - HEADACHE [None]
  - IMPAIRED WORK ABILITY [None]
  - MALAISE [None]
  - NAUSEA [None]
  - RAPID EYE MOVEMENTS SLEEP ABNORMAL [None]
  - SOMNOLENCE [None]
  - VOMITING [None]
